FAERS Safety Report 17106425 (Version 2)
Quarter: 2020Q1

REPORT INFORMATION
  Report Type: Spontaneous
  Country: US (occurrence: US)
  Receive Date: 20191203
  Receipt Date: 20200117
  Transmission Date: 20200409
  Serious: No
  Sender: FDA-Public Use
  Company Number: US-PFIZER INC-2019465959

PATIENT
  Age: 49 Year
  Sex: Female

DRUGS (1)
  1. LYRICA [Suspect]
     Active Substance: PREGABALIN
     Indication: NEUROPATHY PERIPHERAL
     Dosage: 150 MG, TWICE DAILY (EVERY 12 HOURS)
     Route: 048

REACTIONS (6)
  - Gait inability [Unknown]
  - Off label use [Unknown]
  - Pain [Unknown]
  - Movement disorder [Unknown]
  - Feeling abnormal [Unknown]
  - Product use in unapproved indication [Unknown]
